FAERS Safety Report 8523315-4 (Version None)
Quarter: 2012Q3

REPORT INFORMATION
  Report Type: 
  Country: None (occurrence: None)
  Receive Date: 20120713
  Receipt Date: 20120713
  Transmission Date: 20120928
  Serious: No
  Sender: FDA-Public Use
  Company Number: None

PATIENT
  Sex: Female

DRUGS (1)
  1. FORTEO [Suspect]
     Indication: OSTEOPOROSIS
     Dosage: 600MCG DAILY SQ
     Route: 058
     Dates: start: 20111218, end: 20120225

REACTIONS (2)
  - NAUSEA [None]
  - PAIN IN EXTREMITY [None]
